FAERS Safety Report 9833384 (Version 2)
Quarter: 2014Q2

REPORT INFORMATION
  Report Type: Spontaneous
  Country: US (occurrence: US)
  Receive Date: 20140121
  Receipt Date: 20140604
  Transmission Date: 20141212
  Serious: Yes (Death)
  Sender: FDA-Public Use
  Company Number: US-JNJFOC-20140108678

PATIENT
  Age: 20 Year
  Sex: Male

DRUGS (9)
  1. ACETAMINOPHEN [Suspect]
     Route: 048
  2. ACETAMINOPHEN [Suspect]
     Indication: SUICIDE ATTEMPT
     Route: 048
  3. ACETYLSALICYLIC ACID [Suspect]
     Indication: SUICIDE ATTEMPT
     Route: 048
  4. BUPROPION [Suspect]
     Indication: SUICIDE ATTEMPT
     Route: 048
  5. CAFFEINE [Suspect]
     Indication: SUICIDE ATTEMPT
     Route: 048
  6. LAMOTRIGINE [Suspect]
     Indication: SUICIDE ATTEMPT
     Route: 048
  7. ARIPIPRAZOLE [Suspect]
     Indication: SUICIDE ATTEMPT
     Route: 048
  8. CLONAZEPAM [Suspect]
     Indication: SUICIDE ATTEMPT
     Route: 048
  9. ZOLPIDEM [Suspect]
     Indication: SUICIDE ATTEMPT
     Route: 048

REACTIONS (1)
  - Toxicity to various agents [Fatal]
